FAERS Safety Report 14011537 (Version 2)
Quarter: 2017Q4

REPORT INFORMATION
  Report Type: Report from Study
  Country: IT (occurrence: IT)
  Receive Date: 20170926
  Receipt Date: 20171013
  Transmission Date: 20180321
  Serious: Yes (Other)
  Sender: FDA-Public Use
  Company Number: IT-TEVA-808560ACC

PATIENT
  Age: 35 Year
  Sex: Female

DRUGS (2)
  1. MEDROL [Suspect]
     Active Substance: METHYLPREDNISOLONE
     Indication: PRODUCT USED FOR UNKNOWN INDICATION
     Dosage: 12 MILLIGRAM DAILY;
     Route: 048
     Dates: start: 20160512, end: 20160517
  2. ACYCLOVIR. [Suspect]
     Active Substance: ACYCLOVIR
     Indication: PRODUCT USED FOR UNKNOWN INDICATION
     Dosage: 3200 MILLIGRAM DAILY;
     Route: 048
     Dates: start: 20160512, end: 20160520

REACTIONS (4)
  - Oropharyngeal swelling [Unknown]
  - Dysphagia [Unknown]
  - Hyperchlorhydria [Unknown]
  - Throat tightness [Unknown]

NARRATIVE: CASE EVENT DATE: 20160521
